FAERS Safety Report 20327670 (Version 5)
Quarter: 2025Q2

REPORT INFORMATION
  Report Type: Report from Study
  Country: US (occurrence: US)
  Receive Date: 20220112
  Receipt Date: 20250409
  Transmission Date: 20250717
  Serious: Yes (Other)
  Sender: TAKEDA
  Company Number: US-TAKEDA-2021TUS036494

PATIENT
  Age: 75 Year
  Sex: Female
  Weight: 75 kg

DRUGS (2)
  1. PONATINIB [Suspect]
     Active Substance: PONATINIB
     Indication: Chronic myeloid leukaemia
     Dosage: 15 MILLIGRAM, QD
     Dates: start: 20210608
  2. PONATINIB [Suspect]
     Active Substance: PONATINIB
     Dosage: 10 MILLIGRAM, QD

REACTIONS (10)
  - Mental impairment [Unknown]
  - Memory impairment [Unknown]
  - Lung disorder [Unknown]
  - Abnormal faeces [Unknown]
  - Product storage error [Unknown]
  - Product dose omission issue [Unknown]
  - Off label use [Unknown]
  - Neuralgia [Recovered/Resolved]
  - Cough [Unknown]
  - Muscle spasms [Unknown]

NARRATIVE: CASE EVENT DATE: 20210608
